FAERS Safety Report 4926726-9 (Version None)
Quarter: 2006Q1

REPORT INFORMATION
  Report Type: 
  Country: None (occurrence: None)
  Receive Date: 20060228
  Receipt Date: 20050603
  Transmission Date: 20060701
  Serious: No
  Sender: FDA-Public Use
  Company Number: US-GLAXOSMITHKLINE-A0561140A

PATIENT
  Age: 57 Year
  Sex: Male

DRUGS (3)
  1. LAMICTAL [Suspect]
     Indication: DRUG USE FOR UNKNOWN INDICATION
     Dosage: 25MG SINGLE DOSE
     Route: 048
     Dates: start: 20050528
  2. XANAX [Concomitant]
  3. ZIAC [Concomitant]

REACTIONS (3)
  - DIZZINESS [None]
  - RASH [None]
  - URTICARIA [None]
